FAERS Safety Report 6235021-X (Version None)
Quarter: 2009Q2

REPORT INFORMATION
  Report Type: 
  Country: None (occurrence: None)
  Receive Date: 20090618
  Receipt Date: 20090612
  Transmission Date: 20091009
  Serious: Yes (Hospitalization)
  Sender: FDA-Public Use
  Company Number: JP-EISAI INC.-E2090-00765-SPO-JP

PATIENT
  Age: 8 Year
  Sex: Female

DRUGS (6)
  1. EXCEGRAN [Suspect]
     Indication: TUBEROUS SCLEROSIS
     Route: 048
     Dates: start: 20090524, end: 20090526
  2. EXCEGRAN [Suspect]
     Route: 048
     Dates: start: 20090527, end: 20090528
  3. EXCEGRAN [Suspect]
     Route: 048
     Dates: start: 20090529, end: 20090604
  4. EXCEGRAN [Suspect]
     Dates: start: 20090605, end: 20090606
  5. SELENICA-R [Concomitant]
     Route: 048
     Dates: start: 20090406
  6. MYSTAN [Concomitant]
     Route: 048
     Dates: start: 20090422

REACTIONS (1)
  - OCULOMUCOCUTANEOUS SYNDROME [None]
